FAERS Safety Report 6294333-4 (Version None)
Quarter: 2009Q3

REPORT INFORMATION
  Report Type: 
  Country: None (occurrence: None)
  Receive Date: 20090803
  Receipt Date: 20090721
  Transmission Date: 20100115
  Serious: Yes (Other)
  Sender: FDA-Public Use
  Company Number: US-PFIZER INC-2009245930

PATIENT
  Sex: Female
  Weight: 52.616 kg

DRUGS (3)
  1. CHANTIX [Suspect]
     Indication: SMOKING CESSATION THERAPY
     Route: 048
     Dates: start: 20080101
  2. EFFEXOR - SLOW RELEASE [Concomitant]
     Route: 048
  3. QVAR 40 [Concomitant]

REACTIONS (3)
  - BRONCHITIS [None]
  - RASH [None]
  - URTICARIA [None]
